FAERS Safety Report 20685514 (Version 1)
Quarter: 2022Q2

REPORT INFORMATION
  Report Type: Report from Study
  Country: CA (occurrence: CA)
  Receive Date: 20220407
  Receipt Date: 20220407
  Transmission Date: 20220721
  Serious: Yes (Other)
  Sender: FDA-Public Use
  Company Number: CA-TAKEDA-2022TUS022144

PATIENT
  Age: 56 Year
  Sex: Female

DRUGS (6)
  1. VEDOLIZUMAB [Suspect]
     Active Substance: VEDOLIZUMAB
     Indication: Colitis ulcerative
     Dosage: 300 MILLIGRAM
     Route: 042
     Dates: start: 20150812
  2. VEDOLIZUMAB [Suspect]
     Active Substance: VEDOLIZUMAB
     Dosage: 300 MILLIGRAM, Q6WEEKS
     Route: 042
     Dates: start: 20160422
  3. NORTRIPTYLINE [Concomitant]
     Active Substance: NORTRIPTYLINE
     Dosage: 30 MILLIGRAM
  4. PROGESTERONE [Concomitant]
     Active Substance: PROGESTERONE
     Dosage: UNK UNK, QD
  5. ESTRACE [Concomitant]
     Active Substance: ESTRADIOL
     Dosage: 5 MILLIGRAM
  6. ATENOLOL [Concomitant]
     Active Substance: ATENOLOL
     Dosage: 25 MILLIGRAM

REACTIONS (2)
  - Basal cell carcinoma [Unknown]
  - Off label use [Unknown]

NARRATIVE: CASE EVENT DATE: 20160422
